FAERS Safety Report 4438936-8 (Version None)
Quarter: 2004Q3

REPORT INFORMATION
  Report Type: 
  Country: None (occurrence: None)
  Receive Date: 20040830
  Receipt Date: 20040817
  Transmission Date: 20050211
  Serious: Yes (Other)
  Sender: FDA-Public Use
  Company Number: 2004-08-0003

PATIENT
  Age: 63 Year
  Sex: Male

DRUGS (5)
  1. NASAREL 0.029%-IVAX LABORATORIES NASAL SOLUTION [Suspect]
     Dosage: NASAL
     Route: 045
     Dates: start: 20030811
  2. PROZAC [Concomitant]
  3. IBUPROFEN [Concomitant]
  4. TIMOLOL MALEATE [Concomitant]
  5. BUSPAR [Concomitant]

REACTIONS (8)
  - APHASIA [None]
  - DRUG INTERACTION [None]
  - DYSARTHRIA [None]
  - EMBOLIC STROKE [None]
  - MENTAL DISORDER [None]
  - PHARMACEUTICAL PRODUCT COMPLAINT [None]
  - SPEECH DISORDER [None]
  - TRANSIENT ISCHAEMIC ATTACK [None]
